FAERS Safety Report 4366001-7 (Version None)
Quarter: 2004Q2

REPORT INFORMATION
  Report Type: 
  Country: None (occurrence: None)
  Receive Date: 20040520
  Receipt Date: 20040513
  Transmission Date: 20050107
  Serious: Yes (Death)
  Sender: FDA-Public Use
  Company Number: 2004213563FR

PATIENT
  Age: 70 Year
  Sex: Female

DRUGS (5)
  1. ALDACTONE [Suspect]
     Dosage: ORAL
     Route: 048
     Dates: end: 20040411
  2. FOLIC ACID [Suspect]
  3. LASIX [Suspect]
     Dosage: ORAL
     Route: 048
     Dates: end: 20040411
  4. OXAZEPAM [Suspect]
     Dosage: ORAL
     Route: 048
  5. TRACLEER [Suspect]
     Dosage: 4 DF, DAILY, ORAL
     Route: 048
     Dates: start: 20040201, end: 20040411

REACTIONS (6)
  - CARDIAC ARREST [None]
  - CARDIAC FAILURE [None]
  - CARDIOGENIC SHOCK [None]
  - HOT FLUSH [None]
  - HYPERVOLAEMIA [None]
  - MALAISE [None]
